FAERS Safety Report 7683920-4 (Version None)
Quarter: 2011Q3

REPORT INFORMATION
  Report Type: 
  Country: None (occurrence: None)
  Receive Date: 20110815
  Receipt Date: 20110804
  Transmission Date: 20111222
  Serious: Yes (Other)
  Sender: FDA-Public Use
  Company Number: US-ASTRAZENECA-2011SE46784

PATIENT
  Age: 39 Year
  Sex: Male
  Weight: 99 kg

DRUGS (11)
  1. ASPIRIN [Concomitant]
  2. NEXIUM [Interacting]
     Indication: ABDOMINAL PAIN
     Route: 048
     Dates: start: 20100901
  3. NEXIUM [Interacting]
     Route: 048
     Dates: start: 20110101, end: 20110101
  4. LIPITOR [Interacting]
     Indication: HYPERCHOLESTEROLAEMIA
     Route: 048
     Dates: start: 20000101
  5. FISH OIL [Suspect]
     Route: 048
  6. NEXIUM [Interacting]
     Route: 048
  7. ZETIA [Concomitant]
     Indication: LOW DENSITY LIPOPROTEIN INCREASED
  8. ATENOLOL [Concomitant]
  9. ZETIA [Concomitant]
     Indication: HIGH DENSITY LIPOPROTEIN INCREASED
  10. BENAZEPRIL HYDROCHLORIDE [Concomitant]
     Indication: CARDIAC DISORDER
  11. PREVACID [Suspect]
     Indication: ABDOMINAL PAIN
     Route: 048
     Dates: start: 20100401, end: 20100901

REACTIONS (4)
  - DRUG INEFFECTIVE [None]
  - BLOOD TRIGLYCERIDES INCREASED [None]
  - ABDOMINAL PAIN [None]
  - DRUG INTERACTION [None]
